FAERS Safety Report 6268092-5 (Version None)
Quarter: 2009Q3

REPORT INFORMATION
  Report Type: 
  Country: None (occurrence: None)
  Receive Date: 20090715
  Receipt Date: 20080402
  Transmission Date: 20100115
  Serious: Yes (Hospitalization, Other)
  Sender: FDA-Public Use
  Company Number: US-ASTRAZENECA-2008UW02425

PATIENT
  Age: 15477 Day
  Sex: Male
  Weight: 96.8 kg

DRUGS (43)
  1. SEROQUEL [Suspect]
     Indication: BIPOLAR DISORDER
     Dosage: 200 - 300 MG
     Route: 048
     Dates: start: 20020509
  2. SEROQUEL [Suspect]
     Indication: ANXIETY
     Dosage: 200 - 300 MG
     Route: 048
     Dates: start: 20020509
  3. SEROQUEL [Suspect]
     Indication: DEPRESSION
     Dosage: 200 - 300 MG
     Route: 048
     Dates: start: 20020509
  4. SEROQUEL [Suspect]
     Indication: INSOMNIA
     Dosage: 200 - 300 MG
     Route: 048
     Dates: start: 20020509
  5. SEROQUEL [Suspect]
     Dosage: 25MG, 200MG, 300MG
     Route: 048
     Dates: start: 20021001, end: 20070601
  6. SEROQUEL [Suspect]
     Dosage: 25MG, 200MG, 300MG
     Route: 048
     Dates: start: 20021001, end: 20070601
  7. SEROQUEL [Suspect]
     Dosage: 25MG, 200MG, 300MG
     Route: 048
     Dates: start: 20021001, end: 20070601
  8. SEROQUEL [Suspect]
     Dosage: 25MG, 200MG, 300MG
     Route: 048
     Dates: start: 20021001, end: 20070601
  9. GEODON [Concomitant]
     Dates: start: 20030101, end: 20060101
  10. HALDOL [Concomitant]
     Dates: start: 20060101
  11. RISPERDAL [Concomitant]
     Dates: start: 20030101
  12. RISPERDAL [Concomitant]
     Dates: start: 20040101
  13. THORAZINE [Concomitant]
     Dosage: TOOK ONE TIME
  14. ZYPREXA/SYMBYAX (OLANZAPINE) [Concomitant]
     Dates: start: 20071201
  15. TRAZODONE [Concomitant]
     Dates: start: 20030101
  16. LITHIUM [Concomitant]
     Dates: start: 20060101
  17. EFFEXOR [Concomitant]
     Dosage: 50 - 75 MG
     Route: 065
  18. TOPAMAX [Concomitant]
     Route: 065
  19. AMITRIPTYLINE [Concomitant]
     Route: 065
  20. CITALOPRAM HYDROBROMIDE [Concomitant]
     Route: 065
  21. LUNESTA [Concomitant]
     Route: 065
  22. CARISOPRODOL [Concomitant]
     Route: 065
  23. OXYCODONE [Concomitant]
     Route: 065
  24. ULTRACET [Concomitant]
     Route: 065
  25. ZOLOFT [Concomitant]
     Route: 065
  26. REMERON [Concomitant]
     Route: 065
  27. ACCUPRIL [Concomitant]
     Dosage: 10 - 20 MG
     Route: 065
  28. WELLBUTRIN SR [Concomitant]
     Route: 065
  29. CELEBREX [Concomitant]
     Route: 065
  30. LORTAB [Concomitant]
     Route: 065
  31. MORPHINE [Concomitant]
     Dosage: 2 - 4 MG
     Route: 065
  32. BENZTROPINE [Concomitant]
     Route: 065
  33. HYDROXYZINE PAMOATE [Concomitant]
     Route: 065
  34. BUSPIRONE HCL [Concomitant]
     Route: 065
  35. METFORMIN HCL [Concomitant]
     Route: 065
  36. DIAZEPAM [Concomitant]
     Dosage: 5 - 10 MG
     Route: 065
  37. METHYLPREDNISOLONE [Concomitant]
     Route: 065
  38. TIZANIDINE HCL [Concomitant]
     Route: 065
  39. LISINOPRIL [Concomitant]
     Dosage: 10 - 20 MG
     Route: 065
  40. GABAPENTIN [Concomitant]
     Route: 065
  41. IBUPROFEN [Concomitant]
     Route: 065
  42. DIPHENHYDRAMINE HCL [Concomitant]
     Route: 065
  43. SALSALATE [Concomitant]
     Route: 065

REACTIONS (9)
  - BLOOD CHOLESTEROL INCREASED [None]
  - DIABETES MELLITUS [None]
  - HYPOGLYCAEMIA [None]
  - INTERVERTEBRAL DISC PROTRUSION [None]
  - LUMBAR SPINAL STENOSIS [None]
  - MULTIPLE DRUG OVERDOSE INTENTIONAL [None]
  - OVERDOSE [None]
  - SURGERY [None]
  - TYPE 2 DIABETES MELLITUS [None]
